FAERS Safety Report 25031442 (Version 1)
Quarter: 2025Q1

REPORT INFORMATION
  Report Type: Spontaneous
  Country: BE (occurrence: BE)
  Receive Date: 20250303
  Receipt Date: 20250303
  Transmission Date: 20250409
  Serious: Yes (Hospitalization)
  Sender: GLAXOSMITHKLINE
  Company Number: BE-GLAXOSMITHKLINE INC-BE2025EME023218

PATIENT

DRUGS (1)
  1. NUCALA [Suspect]
     Active Substance: MEPOLIZUMAB
     Indication: Nasal polyps
     Dosage: 100 MG, Q4W
     Dates: start: 202410

REACTIONS (4)
  - Renal disorder [Unknown]
  - Biliary tract disorder [Unknown]
  - Arthralgia [Unknown]
  - Abdominal pain [Unknown]
